FAERS Safety Report 4677644-5 (Version None)
Quarter: 2005Q2

REPORT INFORMATION
  Report Type: 
  Country: None (occurrence: None)
  Receive Date: 20050531
  Receipt Date: 20050421
  Transmission Date: 20051028
  Serious: Yes (Death, Hospitalization)
  Sender: FDA-Public Use
  Company Number: JP-ROCHE-402654

PATIENT
  Age: 81 Year
  Sex: Male

DRUGS (5)
  1. ROCEPHIN [Suspect]
     Indication: PYREXIA
     Route: 041
     Dates: start: 20050419, end: 20050420
  2. RISUMIC [Concomitant]
     Dosage: START BEFORE 14 APR 2005. TAKEN DURING DIALYSIS.
     Route: 048
     Dates: start: 20050414
  3. ROCALTROL [Concomitant]
     Dosage: START BEFORE 14 APR 2005. TAKEN DURING DIALYSIS.
     Route: 048
     Dates: start: 20050414
  4. OMEPRAL [Concomitant]
     Dosage: START BEFORE 14 APR 2005.
     Route: 048
     Dates: start: 20050414
  5. CALCICOL [Concomitant]
     Dosage: START BEFORE 14 APR 2005.
     Route: 048
     Dates: start: 20050414

REACTIONS (10)
  - ANAPHYLACTIC REACTION [None]
  - BLOOD PRESSURE DECREASED [None]
  - CARDIAC FAILURE [None]
  - DYSPNOEA [None]
  - EXANTHEM [None]
  - INSOMNIA [None]
  - METABOLIC ACIDOSIS [None]
  - MULTI-ORGAN FAILURE [None]
  - PULMONARY OEDEMA [None]
  - STRIDOR [None]
